FAERS Safety Report 15151820 (Version 2)
Quarter: 2018Q4

REPORT INFORMATION
  Report Type: Spontaneous
  Country: US (occurrence: US)
  Receive Date: 20180716
  Receipt Date: 20181001
  Transmission Date: 20190204
  Serious: No
  Sender: FDA-Public Use
  Company Number: US-AMGEN-USASP2018095617

PATIENT
  Sex: Female

DRUGS (5)
  1. PREDNISONE. [Concomitant]
     Active Substance: PREDNISONE
     Dosage: 5 MG, QD
  2. MEDROL [Concomitant]
     Active Substance: METHYLPREDNISOLONE
     Dosage: 4 MG, UNK
  3. PRIMROSE OIL [Concomitant]
     Dosage: UNK
  4. IBUPROFEN. [Concomitant]
     Active Substance: IBUPROFEN
     Dosage: UNK
  5. ENBREL [Suspect]
     Active Substance: ETANERCEPT
     Indication: PRODUCT USED FOR UNKNOWN INDICATION
     Dosage: UNK
     Route: 065
     Dates: start: 200805, end: 200808

REACTIONS (8)
  - Scoliosis [Unknown]
  - Joint swelling [Unknown]
  - Peripheral swelling [Unknown]
  - Foot deformity [Unknown]
  - Deformity [Unknown]
  - Drug ineffective [Unknown]
  - Synovitis [Unknown]
  - Infection [Unknown]

NARRATIVE: CASE EVENT DATE: 2008
